FAERS Safety Report 7712588-3 (Version None)
Quarter: 2011Q3

REPORT INFORMATION
  Report Type: 
  Country: None (occurrence: None)
  Receive Date: 20110823
  Receipt Date: 20110808
  Transmission Date: 20111222
  Serious: Yes (Hospitalization)
  Sender: FDA-Public Use
  Company Number: US-2011-1911

PATIENT
  Age: 73 Year
  Sex: Female

DRUGS (15)
  1. NAVELBINE [Suspect]
     Indication: NON-SMALL CELL LUNG CANCER
     Dosage: 37 MG/M2, IV
     Route: 042
     Dates: start: 20110428, end: 20110602
  2. CISPLATIN [Suspect]
     Indication: NON-SMALL CELL LUNG CANCER
     Dates: start: 20110428, end: 20110602
  3. ACTONEL [Concomitant]
  4. TENORMIN [Concomitant]
  5. CETUXIMAB [Suspect]
     Indication: NON-SMALL CELL LUNG CANCER
     Dates: start: 20110428, end: 20110602
  6. EVISTA [Concomitant]
  7. MIRTAZAPINE [Concomitant]
  8. RAMIPRIL [Concomitant]
  9. ATIVAN [Concomitant]
  10. LEVOTHYROXINE SODIUM [Concomitant]
  11. SEREVENT [Concomitant]
  12. LIPITOR [Concomitant]
  13. ASPIRIN [Concomitant]
  14. MIRACLE MOUTHWASH [Concomitant]
  15. ESTRING [Concomitant]

REACTIONS (3)
  - FATIGUE [None]
  - DYSPNOEA [None]
  - CLOSTRIDIUM DIFFICILE COLITIS [None]
